FAERS Safety Report 16327565 (Version 1)
Quarter: 2019Q2

REPORT INFORMATION
  Report Type: Spontaneous
  Country: US (occurrence: US)
  Receive Date: 20190412
  Receipt Date: 20190412
  Transmission Date: 20190711
  Serious: No
  Sender: FDA-Public Use
  Company Number: None

PATIENT
  Age: 18 Year
  Sex: Male

DRUGS (1)
  1. SIROLIMUS TAB 2MG [Suspect]
     Active Substance: SIROLIMUS
     Indication: GASTROENTERITIS EOSINOPHILIC
     Route: 048
     Dates: start: 201803

REACTIONS (1)
  - Off label use [None]

NARRATIVE: CASE EVENT DATE: 20190412
